FAERS Safety Report 8072067-3 (Version None)
Quarter: 2011Q4

REPORT INFORMATION
  Report Type: 
  Country: None (occurrence: None)
  Receive Date: 20111221
  Receipt Date: 20110830
  Transmission Date: 20120403
  Serious: Yes (Hospitalization, Other)
  Sender: FDA-Public Use
  Company Number: PHHY2011US66753

PATIENT
  Age: 3 Year
  Sex: Female
  Weight: 11.2 kg

DRUGS (2)
  1. EXJADE [Suspect]
     Indication: SICKLE CELL ANAEMIA
     Dosage: 250 MG, DAILY, ORAL, 250 MG, QD, ORAL
     Route: 048
     Dates: start: 20110801
  2. EXJADE [Suspect]
     Indication: SICKLE CELL ANAEMIA
     Dosage: 250 MG, DAILY, ORAL, 250 MG, QD, ORAL
     Route: 048
     Dates: start: 20110301

REACTIONS (1)
  - HEPATIC ENZYME INCREASED [None]
